FAERS Safety Report 5625890-6 (Version None)
Quarter: 2008Q1

REPORT INFORMATION
  Report Type: 
  Country: None (occurrence: None)
  Receive Date: 20080211
  Receipt Date: 20080128
  Transmission Date: 20080703
  Serious: No
  Sender: FDA-Public Use
  Company Number: 8029628

PATIENT
  Sex: Male
  Weight: 33.7 kg

DRUGS (1)
  1. METHYLPHENIDATE HCL [Suspect]
     Dosage: 30 MG 1/D
     Dates: start: 20070223

REACTIONS (11)
  - ANXIETY [None]
  - APATHY [None]
  - CRYING [None]
  - FATIGUE [None]
  - GASTROINTESTINAL PAIN [None]
  - HEADACHE [None]
  - MOROSE [None]
  - ONYCHOPHAGIA [None]
  - SLEEP DISORDER [None]
  - SOCIAL AVOIDANT BEHAVIOUR [None]
  - TIC [None]
